FAERS Safety Report 7277701-3 (Version None)
Quarter: 2011Q1

REPORT INFORMATION
  Report Type: 
  Country: None (occurrence: None)
  Receive Date: 20110202
  Receipt Date: 20110202
  Transmission Date: 20110831
  Serious: Yes (Other)
  Sender: FDA-Public Use
  Company Number: None

PATIENT
  Age: 45 Year
  Sex: Male
  Weight: 90.7194 kg

DRUGS (1)
  1. CIMBALTA 60 ELI LILLY [Suspect]
     Indication: DEPRESSION
     Dosage: 60MG 2X PO
     Route: 048

REACTIONS (1)
  - DRUG INEFFECTIVE [None]
